FAERS Safety Report 9433706 (Version 1)
Quarter: 2013Q3

REPORT INFORMATION
  Report Type: Report from Study
  Country: MX (occurrence: MX)
  Receive Date: 20130731
  Receipt Date: 20130731
  Transmission Date: 20140515
  Serious: Yes (Death)
  Sender: FDA-Public Use
  Company Number: MX-ABBOTT-13P-107-1126641-00

PATIENT
  Age: 70 Year
  Sex: Male

DRUGS (1)
  1. ZEMPLAR [Suspect]
     Indication: RENAL FAILURE CHRONIC
     Route: 042
     Dates: start: 201303, end: 20130506

REACTIONS (2)
  - Myocardial infarction [Fatal]
  - Renal failure [Fatal]
